FAERS Safety Report 10638028 (Version 1)
Quarter: 2014Q4

REPORT INFORMATION
  Report Type: Spontaneous
  Country: IT (occurrence: IT)
  Receive Date: 20141208
  Receipt Date: 20141208
  Transmission Date: 20150529
  Serious: Yes (Hospitalization)
  Sender: FDA-Public Use
  Company Number: IT-JNJFOC-20141118803

PATIENT
  Age: 45 Year
  Sex: Male
  Weight: 92 kg

DRUGS (5)
  1. RISPERDAL [Suspect]
     Active Substance: RISPERIDONE
     Indication: SCHIZOPHRENIA
     Route: 048
     Dates: start: 20120601, end: 20141125
  2. HALDOL [Concomitant]
     Active Substance: HALOPERIDOL
     Indication: ACUTE PSYCHOSIS
     Route: 065
     Dates: start: 20010301, end: 20141125
  3. HALCION [Concomitant]
     Active Substance: TRIAZOLAM
     Indication: INSOMNIA
     Route: 048
     Dates: start: 20070201, end: 20141125
  4. DEPAKIN [Suspect]
     Active Substance: VALPROATE SODIUM
     Indication: DYSKINESIA
     Route: 065
     Dates: end: 20141125
  5. NOZINAN [Suspect]
     Active Substance: LEVOMEPROMAZINE
     Indication: SCHIZOPHRENIA
     Route: 048
     Dates: start: 20070301, end: 20141125

REACTIONS (3)
  - Intermittent claudication [Recovered/Resolved with Sequelae]
  - Thrombophlebitis [Recovered/Resolved with Sequelae]
  - Deep vein thrombosis [Unknown]

NARRATIVE: CASE EVENT DATE: 20141110
